FAERS Safety Report 4583194-7 (Version None)
Quarter: 2005Q1

REPORT INFORMATION
  Report Type: 
  Country: None (occurrence: None)
  Receive Date: 20050125
  Receipt Date: 20040916
  Transmission Date: 20050727
  Serious: No
  Sender: FDA-Public Use
  Company Number: USA030947176

PATIENT
  Age: 76 Year
  Sex: Female

DRUGS (5)
  1. FORTEO [Suspect]
     Indication: OSTEOPOROSIS
     Dosage: 20 UG DAY
     Dates: start: 20030501
  2. OXYCONTIN [Concomitant]
  3. TYLENOL [Concomitant]
  4. BEN GAY [Concomitant]
  5. ASPIRIN [Concomitant]

REACTIONS (2)
  - BACK PAIN [None]
  - INJECTION SITE HAEMORRHAGE [None]
